FAERS Safety Report 14335950 (Version 1)
Quarter: 2017Q4

REPORT INFORMATION
  Report Type: Spontaneous
  Country: FR (occurrence: FR)
  Receive Date: 20171229
  Receipt Date: 20171229
  Transmission Date: 20180321
  Serious: Yes (Other)
  Sender: FDA-Public Use
  Company Number: FR-CIPLA LTD.-2017FR27322

PATIENT

DRUGS (4)
  1. BUDESONIDE. [Suspect]
     Active Substance: BUDESONIDE
     Indication: BRONCHIOLITIS
     Dosage: 1 DF, DAILY
     Route: 049
     Dates: start: 20170814, end: 20171115
  2. VENTOLINE [Concomitant]
     Active Substance: ALBUTEROL
     Dosage: UNK
     Route: 065
  3. ZYMA D2 [Concomitant]
     Dosage: UNK
     Route: 065
  4. FORLAX [Concomitant]
     Active Substance: POLYETHYLENE GLYCOL 4000
     Dosage: UNK
     Route: 065

REACTIONS (1)
  - Acquired macroglossia [Recovered/Resolved]

NARRATIVE: CASE EVENT DATE: 20171109
